FAERS Safety Report 8030429-4 (Version None)
Quarter: 2012Q1

REPORT INFORMATION
  Report Type: 
  Country: None (occurrence: None)
  Receive Date: 20120109
  Receipt Date: 20120109
  Transmission Date: 20120608
  Serious: No
  Sender: FDA-Public Use
  Company Number: None

PATIENT
  Age: 36 Year
  Sex: Female
  Weight: 63.502 kg

DRUGS (2)
  1. ZICAM [Suspect]
     Indication: PROPHYLAXIS
     Dosage: PER PACKAGE
     Route: 045
  2. ZICAM [Suspect]
     Indication: NASOPHARYNGITIS
     Dosage: PER PACKAGE
     Route: 045

REACTIONS (2)
  - PAROSMIA [None]
  - ANOSMIA [None]
